FAERS Safety Report 18750093 (Version 1)
Quarter: 2021Q1

REPORT INFORMATION
  Report Type: Report from Study
  Country: None (occurrence: ZA)
  Receive Date: 20210118
  Receipt Date: 20210118
  Transmission Date: 20210419
  Serious: Yes (Hospitalization)
  Sender: FDA-Public Use
  Company Number: ZA-ABBVIE-21K-143-3731604-00

PATIENT
  Sex: Female

DRUGS (1)
  1. HUMIRA [Suspect]
     Active Substance: ADALIMUMAB
     Indication: RHEUMATOID ARTHRITIS
     Route: 058
     Dates: start: 2015, end: 202012

REACTIONS (6)
  - Scoliosis [Recovered/Resolved]
  - Hypoaesthesia [Unknown]
  - Onychomadesis [Unknown]
  - Tendonitis [Unknown]
  - Carpal tunnel syndrome [Recovered/Resolved with Sequelae]
  - Therapeutic product effect decreased [Unknown]
